FAERS Safety Report 5857263-5 (Version None)
Quarter: 2008Q3

REPORT INFORMATION
  Report Type: 
  Country: None (occurrence: None)
  Receive Date: 20080822
  Receipt Date: 20080812
  Transmission Date: 20090109
  Serious: Yes (Hospitalization)
  Sender: FDA-Public Use
  Company Number: 237052J08USA

PATIENT
  Age: 67 Year
  Sex: Female

DRUGS (20)
  1. REBIF [Suspect]
     Indication: MULTIPLE SCLEROSIS
     Dosage: 8.8 MCG, 3 IN 1 WEEKS, SUBCUTANEOUS; 22 MCG, 3 IN 1 WEEKS, SUBCUTANEOUS
     Route: 058
     Dates: start: 20070125
  2. REBIF [Suspect]
     Indication: MULTIPLE SCLEROSIS
     Dosage: 8.8 MCG, 3 IN 1 WEEKS, SUBCUTANEOUS; 22 MCG, 3 IN 1 WEEKS, SUBCUTANEOUS
     Route: 058
     Dates: start: 20080409
  3. LEVAQUIN [Concomitant]
  4. TRIMPEX [Concomitant]
  5. AMOXICILLIN [Concomitant]
  6. IMODIUM [Concomitant]
  7. LEVOXYL [Concomitant]
  8. NEXIUM [Concomitant]
  9. BACLOFEN [Concomitant]
  10. PLAVIX [Concomitant]
  11. QUESTRAN [Concomitant]
  12. CYMBALTA [Concomitant]
  13. KLONOPIN [Concomitant]
  14. COZAAR [Concomitant]
  15. REQUIP (ROPINIROL HYDROCHLORIDE) [Concomitant]
  16. TYLENOL (COTYLENOL) [Concomitant]
  17. RESTORIL [Concomitant]
  18. BONIVA [Concomitant]
  19. FLORISTAT (ALL OTHER THERAPEUTIC PRODUCTS) [Concomitant]
  20. IRON (IRON) [Concomitant]

REACTIONS (6)
  - BRONCHITIS [None]
  - CLOSTRIDIUM DIFFICILE COLITIS [None]
  - CONDITION AGGRAVATED [None]
  - MULTIPLE SCLEROSIS [None]
  - RECTAL HAEMORRHAGE [None]
  - WALKING AID USER [None]
